FAERS Safety Report 10385226 (Version 1)
Quarter: 2014Q3

REPORT INFORMATION
  Report Type: Spontaneous
  Country: US (occurrence: US)
  Receive Date: 20140814
  Receipt Date: 20140814
  Transmission Date: 20150326
  Serious: No
  Sender: FDA-Public Use
  Company Number: US-VIVUS-2014V1000367

PATIENT
  Sex: Female
  Weight: 93.98 kg

DRUGS (3)
  1. QSYMIA [Suspect]
     Active Substance: PHENTERMINE HYDROCHLORIDE\TOPIRAMATE
     Indication: WEIGHT DECREASED
     Route: 048
     Dates: start: 2014
  2. QSYMIA [Suspect]
     Active Substance: PHENTERMINE HYDROCHLORIDE\TOPIRAMATE
     Indication: WEIGHT DECREASED
     Route: 048
     Dates: start: 201403, end: 2014
  3. VICTOZA [Concomitant]
     Active Substance: LIRAGLUTIDE
     Indication: BLOOD INSULIN ABNORMAL
     Route: 058

REACTIONS (1)
  - Muscle tightness [Recovered/Resolved]
